FAERS Safety Report 17610709 (Version 1)
Quarter: 2020Q2

REPORT INFORMATION
  Report Type: Spontaneous
  Country: US (occurrence: US)
  Receive Date: 20200401
  Receipt Date: 20200401
  Transmission Date: 20200713
  Serious: Yes (Other)
  Sender: FDA-Public Use
  Company Number: US-SA-2020SA079128

PATIENT
  Age: 25 Year
  Sex: Female

DRUGS (1)
  1. DUPIXENT [Suspect]
     Active Substance: DUPILUMAB
     Dosage: 300 MG, QOW
     Route: 058
     Dates: start: 20200201, end: 2020

REACTIONS (4)
  - Nausea [Unknown]
  - Dizziness [Unknown]
  - Feeling hot [Unknown]
  - Syncope [Unknown]

NARRATIVE: CASE EVENT DATE: 2020
